FAERS Safety Report 6327785-1 (Version None)
Quarter: 2009Q3

REPORT INFORMATION
  Report Type: 
  Country: None (occurrence: None)
  Receive Date: 20090824
  Receipt Date: 20090812
  Transmission Date: 20100115
  Serious: No
  Sender: FDA-Public Use
  Company Number: 2009009593

PATIENT
  Sex: Female

DRUGS (3)
  1. FENTORA [Suspect]
     Indication: CHRONIC MYELOID LEUKAEMIA
     Dosage: (600 MCG ),BU;  (400 MCG),BU
     Route: 002
  2. ACTIQ [Suspect]
     Indication: CHRONIC MYELOID LEUKAEMIA
     Dosage: (800 MCG),BU
     Route: 002
  3. HYDROCODONE-APAP (PARACETAMOL, HYDROCODONE) [Concomitant]

REACTIONS (3)
  - DIZZINESS [None]
  - DRUG PRESCRIBING ERROR [None]
  - FEELING ABNORMAL [None]
